FAERS Safety Report 22037446 (Version 1)
Quarter: 2023Q1

REPORT INFORMATION
  Report Type: Spontaneous
  Country: SK (occurrence: SK)
  Receive Date: 20230226
  Receipt Date: 20230226
  Transmission Date: 20230418
  Serious: Yes (Death, Hospitalization)
  Sender: FDA-Public Use
  Company Number: SK-ABBVIE-4318088

PATIENT
  Sex: Female

DRUGS (1)
  1. SKYRIZI [Suspect]
     Active Substance: RISANKIZUMAB-RZAA
     Indication: Psoriasis
     Route: 058
     Dates: start: 20201007, end: 20230203

REACTIONS (6)
  - Death [Fatal]
  - Intestinal haemorrhage [Not Recovered/Not Resolved]
  - COVID-19 [Unknown]
  - Duodenal ulcer [Not Recovered/Not Resolved]
  - Shock haemorrhagic [Not Recovered/Not Resolved]
  - Sepsis [Not Recovered/Not Resolved]
